FAERS Safety Report 25510554 (Version 2)
Quarter: 2025Q3

REPORT INFORMATION
  Report Type: Spontaneous
  Country: CN (occurrence: CN)
  Receive Date: 20250703
  Receipt Date: 20250810
  Transmission Date: 20251021
  Serious: Yes (Hospitalization, Other)
  Sender: ALEXION PHARMACEUTICALS
  Company Number: CN-AstraZeneca-CH-00900830A

PATIENT
  Age: 70 Year
  Sex: Female

DRUGS (1)
  1. TRUQAP [Suspect]
     Active Substance: CAPIVASERTIB
     Route: 065

REACTIONS (4)
  - Hyperglycaemia [Unknown]
  - Hypoglycaemia [Unknown]
  - Pyrexia [Unknown]
  - Portal venous gas [Unknown]
